FAERS Safety Report 11358806 (Version 1)
Quarter: 2015Q3

REPORT INFORMATION
  Report Type: Spontaneous
  Country: US (occurrence: None)
  Receive Date: 20150807
  Receipt Date: 20150807
  Transmission Date: 20151125
  Serious: Yes (Other)
  Sender: FDA-Public Use
  Company Number: None

PATIENT
  Age: 53 Year
  Sex: Female
  Weight: 67 kg

DRUGS (2)
  1. CURLIN [Concomitant]
  2. HYQVIA [Suspect]
     Active Substance: HUMAN IMMUNOGLOBULIN G\HYALURONIDASE RECOMBINANT HUMAN
     Indication: IMMUNODEFICIENCY
     Dosage: 7.5 GM  WEEKLY  SUBCUTANEOUS
     Route: 058

REACTIONS (3)
  - Catheter site cellulitis [None]
  - Catheter site pain [None]
  - Influenza like illness [None]

NARRATIVE: CASE EVENT DATE: 20150803
